FAERS Safety Report 21993115 (Version 1)
Quarter: 2023Q1

REPORT INFORMATION
  Report Type: Spontaneous
  Country: None (occurrence: US)
  Receive Date: 20230215
  Receipt Date: 20230215
  Transmission Date: 20230418
  Serious: No
  Sender: FDA-Public Use
  Company Number: US-ITALFARMACO SPA-2137965

PATIENT
  Age: 61 Year
  Sex: Male

DRUGS (11)
  1. TIGLUTIK [Suspect]
     Active Substance: RILUZOLE
     Indication: Amyotrophic lateral sclerosis
     Dates: start: 20220721
  2. CHLORTHALIDONE [Concomitant]
     Active Substance: CHLORTHALIDONE
  3. CITALOPRAM [Concomitant]
     Active Substance: CITALOPRAM HYDROBROMIDE
  4. DILTIAZEM [Concomitant]
     Active Substance: DILTIAZEM
  5. INOSITOL [Concomitant]
     Active Substance: INOSITOL
  6. LACTULOSE [Concomitant]
     Active Substance: LACTULOSE
  7. VITAMINS [Concomitant]
     Active Substance: VITAMINS
  8. OLMESARTAN [Concomitant]
     Active Substance: OLMESARTAN
  9. OMEPRAZOLE [Concomitant]
     Active Substance: OMEPRAZOLE
  10. SPIRONOLACTONE [Concomitant]
     Active Substance: SPIRONOLACTONE
  11. TAMSULOSIN [Concomitant]
     Active Substance: TAMSULOSIN

REACTIONS (1)
  - Rash [Unknown]
